FAERS Safety Report 14909771 (Version 2)
Quarter: 2018Q2

REPORT INFORMATION
  Report Type: Report from Study
  Country: CA (occurrence: CA)
  Receive Date: 20180517
  Receipt Date: 20180530
  Transmission Date: 20180711
  Serious: Yes (Other)
  Sender: FDA-Public Use
  Company Number: CA-GLAXOSMITHKLINE-CA2018GSK087398

PATIENT
  Sex: Female

DRUGS (2)
  1. SALBUTAMOL SULPHATE [Suspect]
     Active Substance: ALBUTEROL SULFATE
     Indication: PRODUCT USED FOR UNKNOWN INDICATION
     Dosage: UNK, SINCE 12 YEARS AGO
  2. BREO ELLIPTA [Suspect]
     Active Substance: FLUTICASONE FUROATE\VILANTEROL TRIFENATATE
     Indication: PRODUCT USED FOR UNKNOWN INDICATION
     Dosage: UNK, SINCE 6 MONTHS AGO

REACTIONS (6)
  - Loss of personal independence in daily activities [Unknown]
  - Asthma [Unknown]
  - Myocardial infarction [Unknown]
  - Sleep disorder [Unknown]
  - Dyspnoea [Unknown]
  - Wheezing [Unknown]
